FAERS Safety Report 15562359 (Version 1)
Quarter: 2018Q4

REPORT INFORMATION
  Report Type: Spontaneous
  Country: FR (occurrence: FR)
  Receive Date: 20181029
  Receipt Date: 20181029
  Transmission Date: 20190205
  Serious: Yes (Hospitalization)
  Sender: FDA-Public Use
  Company Number: FR-NOVOPROD-628489

PATIENT
  Age: 61 Year
  Sex: Female

DRUGS (1)
  1. ACTIVELLE [Suspect]
     Active Substance: ESTRADIOL\NORETHINDRONE ACETATE
     Indication: HORMONE REPLACEMENT THERAPY
     Dosage: 1 DF, QD
     Route: 048
     Dates: end: 201512

REACTIONS (1)
  - Meningioma [Recovered/Resolved with Sequelae]

NARRATIVE: CASE EVENT DATE: 201601
